FAERS Safety Report 12651045 (Version 1)
Quarter: 2016Q3

REPORT INFORMATION
  Report Type: Spontaneous
  Country: US (occurrence: None)
  Receive Date: 20160812
  Receipt Date: 20160812
  Transmission Date: 20161109
  Serious: Yes (Life-Threatening, Hospitalization)
  Sender: FDA-Public Use
  Company Number: None

PATIENT
  Age: 29 Year
  Sex: Male
  Weight: 74.84 kg

DRUGS (1)
  1. EQUATE ANTI DIARRHEAL [Suspect]
     Active Substance: LOPERAMIDE HYDROCHLORIDE
     Indication: ANXIETY
     Dosage: VARIOUS TAKEN BY MOUTH
     Route: 048
     Dates: start: 20130801, end: 20160805

REACTIONS (2)
  - Cardiac disorder [None]
  - Drug abuse [None]

NARRATIVE: CASE EVENT DATE: 20160805
